FAERS Safety Report 6231848-9 (Version None)
Quarter: 2009Q2

REPORT INFORMATION
  Report Type: 
  Country: None (occurrence: None)
  Receive Date: 20090612
  Receipt Date: 20090612
  Transmission Date: 20091009
  Serious: Yes (Other)
  Sender: FDA-Public Use
  Company Number: None

PATIENT
  Age: 58 Year
  Sex: Female
  Weight: 63.5036 kg

DRUGS (2)
  1. METOCLOPRAMIDE HCL [Suspect]
     Indication: GASTROOESOPHAGEAL REFLUX DISEASE
     Dosage: 10 MGS BID PO  COUPLE OF YEARS
     Route: 048
  2. METOCLOPRAMIDE HCL [Suspect]
     Indication: IRRITABLE BOWEL SYNDROME
     Dosage: 10 MGS BID PO  COUPLE OF YEARS
     Route: 048

REACTIONS (2)
  - MOVEMENT DISORDER [None]
  - MUSCULAR WEAKNESS [None]
